FAERS Safety Report 7379978-2 (Version None)
Quarter: 2011Q1

REPORT INFORMATION
  Report Type: 
  Country: None (occurrence: None)
  Receive Date: 20110329
  Receipt Date: 20110324
  Transmission Date: 20110831
  Serious: Yes (Death, Other)
  Sender: FDA-Public Use
  Company Number: PHHY2011US24137

PATIENT
  Age: 56 Year
  Sex: Male

DRUGS (15)
  1. DIOVAN [Suspect]
     Dosage: 160 MG, QD
  2. SOTALOL HCL [Concomitant]
  3. POTASSIUM [Concomitant]
  4. AMIODARONE HCL [Concomitant]
     Dosage: ONE PILL, BID
  5. KLOR-CON [Concomitant]
     Dosage: UNK
  6. CIPROFLOXACIN [Concomitant]
     Dosage: 500 MG, UNK
  7. GABAPENTIN [Concomitant]
  8. LIPITOR [Concomitant]
  9. SYMBICORT [Concomitant]
  10. BETAPACE [Concomitant]
  11. DIGOXIN [Concomitant]
     Dosage: 250 MG, QD
  12. LASIX [Concomitant]
     Dosage: UNK
  13. ASPIRIN [Concomitant]
     Dosage: 81 MG, UNK
  14. COUMADIN [Concomitant]
  15. FENOFIBRATE [Concomitant]
     Dosage: 160 MG, UNK

REACTIONS (8)
  - PNEUMONIA [None]
  - LOWER RESPIRATORY TRACT INFECTION [None]
  - SEPSIS [None]
  - RENAL FAILURE [None]
  - DEATH [None]
  - LOSS OF CONSCIOUSNESS [None]
  - PYREXIA [None]
  - HEPATIC FAILURE [None]
